FAERS Safety Report 6115920-X (Version None)
Quarter: 2009Q1

REPORT INFORMATION
  Report Type: 
  Country: None (occurrence: None)
  Receive Date: 20090311
  Receipt Date: 20090227
  Transmission Date: 20090719
  Serious: Yes (Hospitalization)
  Sender: FDA-Public Use
  Company Number: US025400

PATIENT
  Age: 81 Year
  Sex: Female

DRUGS (7)
  1. TRISENOX [Suspect]
     Indication: ACUTE PROMYELOCYTIC LEUKAEMIA
     Dosage: 6.225 MG QD INTRAVENOUS DRIP
     Route: 041
     Dates: start: 20070428, end: 20070601
  2. IDARUBICIN HYDROCHLORIDE [Suspect]
     Dosage: 14 MG QD INTRAVENOUS DRIP
     Route: 041
     Dates: start: 20070509, end: 20070510
  3. PAZUFLOXACIN MESILATE [Concomitant]
  4. IMIPENEM AND CILASTATIN SODIUM [Concomitant]
  5. MICAFUNGIN SODIUM [Concomitant]
  6. CIPROFLOXACIN [Concomitant]
  7. TEICOPLANIN [Concomitant]

REACTIONS (5)
  - CHOLECYSTITIS [None]
  - DISSEMINATED INTRAVASCULAR COAGULATION [None]
  - HYPERKALAEMIA [None]
  - HYPOKALAEMIA [None]
  - LEUKOCYTOSIS [None]
